FAERS Safety Report 4332622-0 (Version None)
Quarter: 2004Q1

REPORT INFORMATION
  Report Type: 
  Country: None (occurrence: None)
  Receive Date: 20040330
  Receipt Date: 20040311
  Transmission Date: 20041129
  Serious: Yes (Congenital Anomaly)
  Sender: FDA-Public Use
  Company Number: S04-FRA-01167-02

PATIENT
  Age: 0 Day
  Sex: Female
  Weight: 2.7 kg

DRUGS (2)
  1. MONURIL ^ZAMBON^ (FOSFOMYCIN TROMETHAMINE) [Suspect]
  2. CELESTONE [Concomitant]

REACTIONS (3)
  - CONGENITAL VENTRICULAR SEPTAL DEFECT [None]
  - MATERNAL DRUGS AFFECTING FOETUS [None]
  - MICROGNATHIA [None]
